FAERS Safety Report 8016002-2 (Version None)
Quarter: 2011Q4

REPORT INFORMATION
  Report Type: 
  Country: None (occurrence: None)
  Receive Date: 20111230
  Receipt Date: 20111230
  Transmission Date: 20120403
  Serious: No
  Sender: FDA-Public Use
  Company Number: None

PATIENT
  Age: 38 Year
  Sex: Male
  Weight: 81.646 kg

DRUGS (1)
  1. BUPROPION HCL [Suspect]
     Indication: ANXIETY
     Dosage: 100MG
     Route: 048
     Dates: start: 20110801, end: 20111220

REACTIONS (4)
  - SLEEP DISORDER [None]
  - PRODUCT SUBSTITUTION ISSUE [None]
  - EMOTIONAL DISORDER [None]
  - DRUG INEFFECTIVE [None]
